FAERS Safety Report 9090681 (Version 1)
Quarter: 2013Q1

REPORT INFORMATION
  Report Type: Spontaneous
  Country: CA (occurrence: CA)
  Receive Date: 20130201
  Receipt Date: 20130201
  Transmission Date: 20140127
  Serious: Yes (Other)
  Sender: FDA-Public Use
  Company Number: CA-ABBOTT-13P-028-1042353-00

PATIENT
  Age: 37 Year
  Sex: Female

DRUGS (3)
  1. HUMIRA [Suspect]
     Indication: PRODUCT USED FOR UNKNOWN INDICATION
     Route: 058
  2. REMICADE [Suspect]
     Indication: PRODUCT USED FOR UNKNOWN INDICATION
     Dosage: POWDER FOR SOLUTION FOR INJECTION
     Route: 042
  3. REMICADE [Suspect]
     Route: 042

REACTIONS (8)
  - Anxiety [Unknown]
  - Chest discomfort [Unknown]
  - Fatigue [Unknown]
  - Muscle tightness [Unknown]
  - Muscular weakness [Unknown]
  - Oedema peripheral [Unknown]
  - Panic attack [Unknown]
  - Swelling face [Unknown]
